FAERS Safety Report 16720380 (Version 1)
Quarter: 2019Q3

REPORT INFORMATION
  Report Type: Spontaneous
  Country: US (occurrence: US)
  Receive Date: 20190702
  Receipt Date: 20190702
  Transmission Date: 20191005
  Serious: No
  Sender: FDA-Public Use
  Company Number: None

PATIENT

DRUGS (2)
  1. IBRANCE [Suspect]
     Active Substance: PALBOCICLIB
     Indication: NEOPLASM MALIGNANT
     Dates: start: 20181126, end: 20190619
  2. LETROZOLE 2.5MG [Suspect]
     Active Substance: LETROZOLE

REACTIONS (19)
  - Insomnia [None]
  - Peripheral swelling [None]
  - Hot flush [None]
  - Constipation [None]
  - Pain in extremity [None]
  - Dehydration [None]
  - Dyspnoea [None]
  - Mood swings [None]
  - Diarrhoea [None]
  - Dizziness [None]
  - Myalgia [None]
  - Cough [None]
  - Dry eye [None]
  - Arthralgia [None]
  - Oral pain [None]
  - Dysmenorrhoea [None]
  - Bone pain [None]
  - Eye pain [None]
  - Rash [None]
